FAERS Safety Report 15277281 (Version 1)
Quarter: 2018Q3

REPORT INFORMATION
  Report Type: Spontaneous
  Country: FR (occurrence: FR)
  Receive Date: 20180814
  Receipt Date: 20180814
  Transmission Date: 20181010
  Serious: Yes (Life-Threatening, Other)
  Sender: FDA-Public Use
  Company Number: FR-PFIZER INC-2018322546

PATIENT
  Age: 72 Year
  Sex: Female
  Weight: 55 kg

DRUGS (2)
  1. CARBOPLATINE HOSPIRA [Suspect]
     Active Substance: CARBOPLATIN
     Indication: OVARIAN CANCER STAGE III
     Dosage: 552.6 MG, SINGLE
     Route: 042
     Dates: start: 20180420, end: 20180420
  2. PACLITAXEL HOSPIRA [Suspect]
     Active Substance: PACLITAXEL
     Indication: OVARIAN CANCER STAGE III
     Dosage: 276.8 MG, SINGLE
     Route: 042
     Dates: start: 20180420, end: 20180420

REACTIONS (4)
  - Pulmonary embolism [Recovering/Resolving]
  - Multiple organ dysfunction syndrome [Recovered/Resolved with Sequelae]
  - Bone marrow failure [Recovered/Resolved]
  - Septic shock [Recovered/Resolved with Sequelae]

NARRATIVE: CASE EVENT DATE: 20180426
